FAERS Safety Report 24562664 (Version 2)
Quarter: 2024Q4

REPORT INFORMATION
  Report Type: Report from Study
  Country: CA (occurrence: CA)
  Receive Date: 20241029
  Receipt Date: 20241105
  Transmission Date: 20250115
  Serious: Yes (Death, Other)
  Sender: GILEAD
  Company Number: CA-GSK-CA2024AMR131575

PATIENT
  Age: 69 Year
  Sex: Female

DRUGS (1)
  1. AMBRISENTAN [Suspect]
     Active Substance: AMBRISENTAN
     Indication: Pulmonary arterial hypertension
     Dosage: 5 MG, QD
     Route: 048
     Dates: start: 20220112

REACTIONS (1)
  - Death [Fatal]

NARRATIVE: CASE EVENT DATE: 20240922
